FAERS Safety Report 9687594 (Version 1)
Quarter: 2013Q4

REPORT INFORMATION
  Report Type: Spontaneous
  Country: US (occurrence: None)
  Receive Date: 20131112
  Receipt Date: 20131112
  Transmission Date: 20140711
  Serious: Yes (Disabling, Other)
  Sender: FDA-Public Use
  Company Number: 2013P1018951

PATIENT
  Age: 41 Year
  Sex: Female

DRUGS (1)
  1. PHENTERMINE [Suspect]

REACTIONS (2)
  - Blindness unilateral [None]
  - Cerebrovascular accident [None]
